FAERS Safety Report 8986823 (Version 1)
Quarter: 2012Q4

REPORT INFORMATION
  Report Type: 
  Country: DE (occurrence: DE)
  Receive Date: 20121226
  Receipt Date: 20121226
  Transmission Date: 20130627
  Serious: Yes (Hospitalization, Congenital Anomaly, Other)
  Sender: FDA-Public Use
  Company Number: DE-MYLANLABS-2012S1025817

PATIENT
  Sex: Male
  Weight: 3.05 kg

DRUGS (4)
  1. AZATHIOPRINE [Suspect]
     Route: 064
  2. KINERET [Suspect]
     Route: 064
  3. DECORTIN H [Suspect]
     Route: 064
  4. FOLIC ACID [Concomitant]
     Indication: PROPHYLAXIS OF NEURAL TUBE DEFECT
     Dosage: 1-38.2 GW
     Route: 064

REACTIONS (4)
  - Renal aplasia [Not Recovered/Not Resolved]
  - Exposure during pregnancy [Unknown]
  - Hypoglycaemia neonatal [Recovered/Resolved]
  - Feeding disorder neonatal [Recovered/Resolved]
